FAERS Safety Report 24887310 (Version 3)
Quarter: 2025Q1

REPORT INFORMATION
  Report Type: Spontaneous
  Country: CA (occurrence: CA)
  Receive Date: 20250127
  Receipt Date: 20250206
  Transmission Date: 20250408
  Serious: Yes (Other)
  Sender: BIOGEN
  Company Number: CA-BIOGEN-2025BI01298182

PATIENT
  Sex: Female

DRUGS (1)
  1. TECFIDERA [Suspect]
     Active Substance: DIMETHYL FUMARATE
     Indication: Multiple sclerosis
     Route: 050
     Dates: start: 20131123

REACTIONS (1)
  - Breast cancer female [Unknown]
